FAERS Safety Report 5829042-6 (Version None)
Quarter: 2008Q3

REPORT INFORMATION
  Report Type: 
  Country: None (occurrence: None)
  Receive Date: 20080731
  Receipt Date: 20080103
  Transmission Date: 20090109
  Serious: Yes (Hospitalization)
  Sender: FDA-Public Use
  Company Number: US-BRISTOL-MYERS SQUIBB COMPANY-14030027

PATIENT
  Age: 68 Year
  Sex: Female

DRUGS (2)
  1. TEQUIN [Suspect]
     Indication: PYREXIA
  2. TYLENOL [Suspect]
     Indication: PYREXIA

REACTIONS (4)
  - ABDOMINAL PAIN UPPER [None]
  - CHILLS [None]
  - HAEMATURIA [None]
  - PYREXIA [None]
